FAERS Safety Report 4625753-9 (Version None)
Quarter: 2005Q1

REPORT INFORMATION
  Report Type: 
  Country: None (occurrence: None)
  Receive Date: 20050330
  Receipt Date: 20050318
  Transmission Date: 20050727
  Serious: Yes (Hospitalization)
  Sender: FDA-Public Use
  Company Number: 8009672

PATIENT
  Age: 66 Year
  Sex: Male

DRUGS (6)
  1. KEPPRA [Suspect]
     Indication: EPILEPSY
     Dosage: 1500 MG 2/D PO
     Route: 048
     Dates: start: 20041001
  2. KEPPRA [Suspect]
     Indication: EPILEPSY
  3. CARBAMAZEPINE [Concomitant]
  4. PHENYTOIN [Concomitant]
  5. TOPIRAMATE [Concomitant]
  6. ASPIRIN [Concomitant]

REACTIONS (2)
  - ERYTHEMA MULTIFORME [None]
  - LICHEN PLANUS [None]
